FAERS Safety Report 25311952 (Version 1)
Quarter: 2025Q2

REPORT INFORMATION
  Report Type: Spontaneous
  Country: US (occurrence: US)
  Receive Date: 20250514
  Receipt Date: 20250514
  Transmission Date: 20250717
  Serious: No
  Sender: INSUD PHARMA
  Company Number: US-INSUD PHARMA-2505US03471

PATIENT

DRUGS (2)
  1. SLYND [Suspect]
     Active Substance: DROSPIRENONE
     Indication: Oral contraception
     Route: 048
     Dates: start: 202504
  2. SLYND [Suspect]
     Active Substance: DROSPIRENONE
     Route: 048
     Dates: end: 2025

REACTIONS (3)
  - Malaise [Not Recovered/Not Resolved]
  - Intermenstrual bleeding [Unknown]
  - Dysmenorrhoea [Not Recovered/Not Resolved]

NARRATIVE: CASE EVENT DATE: 20250101
